FAERS Safety Report 4990293-4 (Version None)
Quarter: 2006Q2

REPORT INFORMATION
  Report Type: 
  Country: None (occurrence: None)
  Receive Date: 20060501
  Receipt Date: 20060501
  Transmission Date: 20061013
  Serious: Yes (Death, Life-Threatening, Hospitalization)
  Sender: FDA-Public Use
  Company Number: None

PATIENT
  Age: 69 Year
  Sex: Female
  Weight: 49.8957 kg

DRUGS (1)
  1. KETEK [Suspect]
     Indication: SINUSITIS
     Dosage: 40 MG 2 TIMES PER DAY PO
     Route: 048
     Dates: start: 20051214, end: 20051215

REACTIONS (1)
  - HEPATIC FAILURE [None]
